FAERS Safety Report 6380989-4 (Version None)
Quarter: 2009Q3

REPORT INFORMATION
  Report Type: 
  Country: None (occurrence: None)
  Receive Date: 20090929
  Receipt Date: 20090917
  Transmission Date: 20100115
  Serious: Yes (Death)
  Sender: FDA-Public Use
  Company Number: GB-PFIZER INC-2009270261

PATIENT
  Age: 69 Year

DRUGS (3)
  1. SOMATROPIN [Suspect]
     Indication: HYPOPITUITARISM
     Dosage: UNK MG, UNK
     Dates: start: 20010731, end: 20080216
  2. HYDROCORTISONE [Concomitant]
     Dosage: 10 MG, UNK
     Dates: start: 19950920, end: 20080216
  3. DESMOSPRAY [Concomitant]
     Dosage: 10 MG, UNK
     Dates: start: 20000522, end: 20080216

REACTIONS (1)
  - DEATH [None]
